FAERS Safety Report 7746034-0 (Version None)
Quarter: 2011Q3

REPORT INFORMATION
  Report Type: 
  Country: None (occurrence: None)
  Receive Date: 20110913
  Receipt Date: 20110804
  Transmission Date: 20111222
  Serious: Yes (Hospitalization)
  Sender: FDA-Public Use
  Company Number: DE-ELI_LILLY_AND_COMPANY-DE201108001819

PATIENT
  Sex: Female

DRUGS (6)
  1. RAMIPRIL [Concomitant]
  2. METFORMIN HCL [Concomitant]
  3. INSULIN [Concomitant]
  4. OMEPRAZOLE [Concomitant]
  5. CYMBALTA [Suspect]
     Dosage: 60 MG, UNK
     Route: 048
     Dates: start: 20080912, end: 20110601
  6. SIMVASTATIN [Concomitant]

REACTIONS (1)
  - TRANSAMINASES INCREASED [None]
